FAERS Safety Report 7301449-X (Version None)
Quarter: 2011Q1

REPORT INFORMATION
  Report Type: 
  Country: None (occurrence: None)
  Receive Date: 20110218
  Receipt Date: 20110211
  Transmission Date: 20110831
  Serious: Yes (Other)
  Sender: FDA-Public Use
  Company Number: US-TEVA-267428USA

PATIENT
  Sex: Male

DRUGS (2)
  1. METOCLOPRAMIDE HCL [Suspect]
  2. METOCLOPRAMIDE HCL [Suspect]

REACTIONS (8)
  - PARALYSIS [None]
  - MYOCLONUS [None]
  - TARDIVE DYSKINESIA [None]
  - DYSTONIA [None]
  - MEIGE'S SYNDROME [None]
  - MOVEMENT DISORDER [None]
  - EYE MOVEMENT DISORDER [None]
  - MASTICATION DISORDER [None]
